FAERS Safety Report 17008374 (Version 1)
Quarter: 2019Q4

REPORT INFORMATION
  Report Type: Spontaneous
  Country: PL (occurrence: PL)
  Receive Date: 20191108
  Receipt Date: 20191108
  Transmission Date: 20200122
  Serious: Yes (Other)
  Sender: FDA-Public Use
  Company Number: PL-ACCORD-160318

PATIENT
  Age: 33 Year

DRUGS (4)
  1. LETROZOLE. [Suspect]
     Active Substance: LETROZOLE
     Indication: BREAST CANCER METASTATIC
     Dosage: ADMINISTERED CONTINUOUSLY
     Dates: start: 201810
  2. TAMOXIFEN [Concomitant]
     Active Substance: TAMOXIFEN
     Indication: METASTASES TO LIVER
     Dates: start: 201706
  3. TAMOXIFEN [Concomitant]
     Active Substance: TAMOXIFEN
     Indication: BREAST CANCER METASTATIC
     Dates: start: 201706
  4. RIBOCICLIB. [Suspect]
     Active Substance: RIBOCICLIB
     Indication: BREAST CANCER METASTATIC
     Dosage: ADMINISTERED FOR 21 DAYS, AND FOLLOWED BY A 7-DAY INTERVAL
     Dates: start: 201810, end: 2019

REACTIONS (1)
  - Neutropenia [Recovered/Resolved]
